FAERS Safety Report 7624661-9 (Version None)
Quarter: 2011Q3

REPORT INFORMATION
  Report Type: 
  Country: None (occurrence: None)
  Receive Date: 20110720
  Receipt Date: 20110713
  Transmission Date: 20111222
  Serious: Yes (Hospitalization)
  Sender: FDA-Public Use
  Company Number: US-GENZYME-RENA-1001220

PATIENT
  Sex: Male

DRUGS (1)
  1. RENVELA [Suspect]
     Indication: HYPERPHOSPHATAEMIA
     Route: 048

REACTIONS (3)
  - SURGERY [None]
  - GASTROINTESTINAL TUBE INSERTION [None]
  - ENDOTRACHEAL INTUBATION [None]
